FAERS Safety Report 7276356-1 (Version None)
Quarter: 2011Q1

REPORT INFORMATION
  Report Type: 
  Country: None (occurrence: None)
  Receive Date: 20110204
  Receipt Date: 20110128
  Transmission Date: 20110831
  Serious: Yes (Hospitalization, Other)
  Sender: FDA-Public Use
  Company Number: BR-US-EMD SERONO, INC.-7004733

PATIENT
  Sex: Female

DRUGS (6)
  1. DYPIRONE [Concomitant]
  2. SERTRALINE [Concomitant]
  3. REBIF [Suspect]
     Indication: MULTIPLE SCLEROSIS
     Route: 058
     Dates: start: 20091225
  4. ANSITEC [Concomitant]
  5. IBUPROFEN [Concomitant]
  6. MANIPULATED FORMULATION WITH PHOSPHORUS [Concomitant]

REACTIONS (19)
  - TROPONIN INCREASED [None]
  - HEADACHE [None]
  - PAIN [None]
  - CARDIAC DISORDER [None]
  - BLOOD CREATINE PHOSPHOKINASE ABNORMAL [None]
  - ARTHRALGIA [None]
  - UNEVALUABLE EVENT [None]
  - BACK PAIN [None]
  - STRESS [None]
  - ARTERIAL SPASM [None]
  - PAIN IN EXTREMITY [None]
  - CHEST PAIN [None]
  - HERPES ZOSTER [None]
  - INFREQUENT BOWEL MOVEMENTS [None]
  - MYOCARDIAL ISCHAEMIA [None]
  - BLOOD CREATINE PHOSPHOKINASE MB ABNORMAL [None]
  - NEURALGIA [None]
  - NEUROPATHY PERIPHERAL [None]
  - CONGENITAL ECTOPIC PANCREAS [None]
